FAERS Safety Report 17872978 (Version 4)
Quarter: 2020Q4

REPORT INFORMATION
  Report Type: Spontaneous
  Country: US (occurrence: US)
  Receive Date: 20200608
  Receipt Date: 20201027
  Transmission Date: 20210113
  Serious: No
  Sender: FDA-Public Use
  Company Number: US-AGIOS-2006US01956

PATIENT

DRUGS (1)
  1. TIBSOVO [Suspect]
     Active Substance: IVOSIDENIB
     Indication: OLIGODENDROGLIOMA
     Dosage: 250 MILLIGRAM, 2 TABLETS (500 MG) DAILY
     Dates: start: 202005

REACTIONS (13)
  - Asthenia [Unknown]
  - Amnesia [Unknown]
  - Confusional state [Unknown]
  - Malaise [Unknown]
  - Paraesthesia [Unknown]
  - Pain in extremity [Unknown]
  - Muscular weakness [Unknown]
  - Off label use [Not Recovered/Not Resolved]
  - Burning sensation [Unknown]
  - Diarrhoea [Unknown]
  - Fatigue [Unknown]
  - Paraesthesia [Unknown]
  - Influenza [Unknown]

NARRATIVE: CASE EVENT DATE: 202005
